FAERS Safety Report 11128847 (Version 1)
Quarter: 2015Q2

REPORT INFORMATION
  Report Type: Spontaneous
  Country: US (occurrence: US)
  Receive Date: 20150521
  Receipt Date: 20150521
  Transmission Date: 20150821
  Serious: Yes (Hospitalization, Other)
  Sender: FDA-Public Use
  Company Number: US-SA-2015SA066125

PATIENT
  Age: 81 Year

DRUGS (3)
  1. CYTOXAN [Suspect]
     Active Substance: CYCLOPHOSPHAMIDE
     Dosage: FREQUENCY-1-3
     Route: 042
     Dates: start: 20110614, end: 20110901
  2. FLUDARA [Suspect]
     Active Substance: FLUDARABINE PHOSPHATE
     Dosage: DOSE-25?FREQUENCY-1-3
     Route: 042
     Dates: start: 20110614, end: 20110901
  3. RITUXIMAB [Suspect]
     Active Substance: RITUXIMAB
     Dosage: DOSE= 600?FREQUENCY= DAY 1
     Route: 042
     Dates: start: 20110614, end: 20111010

REACTIONS (2)
  - Fall [Unknown]
  - Hip fracture [Unknown]
